FAERS Safety Report 24316222 (Version 1)
Quarter: 2024Q3

REPORT INFORMATION
  Report Type: Spontaneous
  Country: JP (occurrence: JP)
  Receive Date: 20240913
  Receipt Date: 20240913
  Transmission Date: 20241017
  Serious: Yes (Hospitalization, Other)
  Sender: ACCORD
  Company Number: JP-Accord-445490

PATIENT
  Age: 64 Year
  Sex: Female

DRUGS (4)
  1. BUSULFAN [Suspect]
     Active Substance: BUSULFAN
     Indication: Bone marrow conditioning regimen
     Dosage: ON DAYS -3 AND -2
  2. MYCOPHENOLATE MOFETIL [Suspect]
     Active Substance: MYCOPHENOLATE MOFETIL
     Indication: Prophylaxis against graft versus host disease
  3. TACROLIMUS [Suspect]
     Active Substance: TACROLIMUS
     Indication: Prophylaxis against graft versus host disease
  4. FLUDARABINE [Suspect]
     Active Substance: FLUDARABINE PHOSPHATE
     Indication: Bone marrow conditioning regimen
     Dosage: ON DAYS -7 TO -2

REACTIONS (4)
  - Staphylococcal infection [Recovered/Resolved]
  - Stenotrophomonas infection [Recovered/Resolved]
  - Small intestinal perforation [Recovered/Resolved]
  - Cytomegalovirus enteritis [Recovered/Resolved]
